FAERS Safety Report 14367578 (Version 12)
Quarter: 2020Q1

REPORT INFORMATION
  Report Type: Spontaneous
  Country: CA (occurrence: CA)
  Receive Date: 20180109
  Receipt Date: 20200102
  Transmission Date: 20200409
  Serious: Yes (Hospitalization)
  Sender: FDA-Public Use
  Company Number: CA-CELLTRION INC.-2017CA005814

PATIENT

DRUGS (34)
  1. INFLECTRA [Suspect]
     Active Substance: INFLIXIMAB-DYYB
     Dosage: 600 MG (5MG/KG)
     Route: 042
     Dates: start: 20180102, end: 20180102
  2. INFLECTRA [Suspect]
     Active Substance: INFLIXIMAB-DYYB
     Dosage: 7 MG/KG, CYCLIC (EVERY 4 WEEKS)
     Route: 042
     Dates: start: 20180807, end: 20180807
  3. LANTUS [Concomitant]
     Active Substance: INSULIN GLARGINE
     Dosage: UNK
     Route: 065
  4. PREDNISONE. [Concomitant]
     Active Substance: PREDNISONE
     Dosage: TAPERING
     Dates: start: 20171103
  5. APO-PREDNISONE [Concomitant]
     Active Substance: PREDNISONE
     Dosage: 10 MG, 1X/DAY (START TAPERING BY 0.5 MG PER MONTH)
     Route: 048
     Dates: start: 20180102
  6. PROLIA [Concomitant]
     Active Substance: DENOSUMAB
     Indication: OSTEOPOROSIS
     Dosage: 60 MG, CYCLIC (EVERY 6 WEEKS)
     Route: 058
     Dates: start: 20180102
  7. INFLECTRA [Suspect]
     Active Substance: INFLIXIMAB-DYYB
     Dosage: 615 MG, EVERY 4 WEEKS
     Route: 042
     Dates: start: 2017
  8. INFLECTRA [Suspect]
     Active Substance: INFLIXIMAB-DYYB
     Dosage: 840 MG, CYCLIC (THEN EVERY 4 WEEKS)
     Route: 042
     Dates: start: 20180201, end: 2018
  9. JANUMET [Concomitant]
     Active Substance: METFORMIN HYDROCHLORIDE\SITAGLIPTIN PHOSPHATE
     Dosage: UNK
     Route: 065
  10. CYMBALTA [Concomitant]
     Active Substance: DULOXETINE HYDROCHLORIDE
     Dosage: 2 DF, 1X/DAY
  11. CALCIUM CARBONATE/MAGNESIUM OXIDE [Concomitant]
     Dosage: 1 DF, 3X/DAY, FOR 30 DAY(S)
     Route: 048
  12. INFLECTRA [Suspect]
     Active Substance: INFLIXIMAB-DYYB
     Dosage: 840 MG, CYCLIC (EVERY 4 WEEKS)
     Route: 042
     Dates: start: 20180405
  13. TRAMADOL. [Concomitant]
     Active Substance: TRAMADOL
     Dosage: 325 MG, AS NEEDED
     Route: 065
  14. ATIVAN [Concomitant]
     Active Substance: LORAZEPAM
     Dosage: 1 DF, 1X/DAY
  15. BISOPROLOL [Concomitant]
     Active Substance: BISOPROLOL
     Dosage: 10 MG, 1X/DAY
     Route: 048
  16. DOXAZOSIN [Concomitant]
     Active Substance: DOXAZOSIN MESYLATE
     Dosage: 1 MG, 1X/DAY
     Route: 048
  17. ALTACE [Concomitant]
     Active Substance: RAMIPRIL
     Dosage: 10 MG, 1X/DAY
     Route: 048
  18. CIMZIA [Concomitant]
     Active Substance: CERTOLIZUMAB PEGOL
     Dosage: UNK
     Route: 065
  19. LYRICA [Concomitant]
     Active Substance: PREGABALIN
     Dosage: 3 DF, 2X/DAY, FOR 30 DAY(S)
     Dates: start: 20180405
  20. CALCIUM CARBONATE/MAGNESIUM OXIDE [Concomitant]
     Dosage: 1 DF, 3X/DAY, FOR 30 DAY(S)
     Route: 048
  21. FERROUS GLUCONATE [Concomitant]
     Active Substance: FERROUS GLUCONATE
     Dosage: 1 DF, 3X/DAY, X 2 MONTHS, THEN 1 TABLET(S) ONCE DAILY X 3 MONTHS
     Route: 048
     Dates: start: 20170208
  22. INFLECTRA [Suspect]
     Active Substance: INFLIXIMAB-DYYB
     Dosage: 840 MG, EVERY 4 WEEKS
     Route: 042
  23. INFLECTRA [Suspect]
     Active Substance: INFLIXIMAB-DYYB
     Dosage: 840 MG, CYCLIC (THEN EVERY 4 WEEKS)
     Route: 042
     Dates: start: 20180312
  24. INFLECTRA [Suspect]
     Active Substance: INFLIXIMAB-DYYB
     Dosage: 9 MG/KG (1089MG), UNK
     Route: 042
     Dates: start: 20170109, end: 20180807
  25. DULOXETINE. [Concomitant]
     Active Substance: DULOXETINE
     Dosage: 60 MG, 1X/DAY
     Route: 048
  26. TRAMACET [Concomitant]
     Active Substance: ACETAMINOPHEN\TRAMADOL
     Dosage: 1.-2 TABLET(S) EVERY 4 TO 6 HOURS AS
     Dates: start: 20170505
  27. INFLECTRA [Suspect]
     Active Substance: INFLIXIMAB-DYYB
     Indication: RHEUMATOID ARTHRITIS
     Dosage: 369 MG, CYCLIC (EVERY 0,2,6, WEEKS THEN EVERY 4 WEEKS)
     Route: 042
     Dates: start: 20170109, end: 2017
  28. INFLECTRA [Suspect]
     Active Substance: INFLIXIMAB-DYYB
     Dosage: UNK, EVERY 4 WEEKS
     Route: 042
     Dates: start: 20170109
  29. TRAMACET [Concomitant]
     Active Substance: ACETAMINOPHEN\TRAMADOL
     Dosage: 1.-2 TABLET(S) EVERY 4 TO 6 HOURS AS
     Dates: start: 20170505
  30. HYDROCHLOROTHIAZIDE. [Concomitant]
     Active Substance: HYDROCHLOROTHIAZIDE
     Dosage: 0.5 DF, 1X/DAY
     Dates: start: 20171003
  31. SYMBICORT [Concomitant]
     Active Substance: BUDESONIDE\FORMOTEROL FUMARATE DIHYDRATE
     Dosage: 2 INHALATION, 2X/DAY
     Dates: start: 20180208
  32. REACTINE /00884302/ [Concomitant]
     Active Substance: CETIRIZINE HYDROCHLORIDE
     Dosage: 1 DF, MONTHLY
  33. SUMATRIPTAN. [Concomitant]
     Active Substance: SUMATRIPTAN
     Dosage: 100 MG, AS NEEDED
     Route: 065
  34. PROLIA [Concomitant]
     Active Substance: DENOSUMAB
     Indication: FRACTURE

REACTIONS (10)
  - Chronic obstructive pulmonary disease [Recovered/Resolved]
  - Blood pressure fluctuation [Recovered/Resolved]
  - Dyspnoea exertional [Unknown]
  - Off label use [Unknown]
  - Drug ineffective [Not Recovered/Not Resolved]
  - Respiratory tract infection viral [Recovered/Resolved]
  - Incorrect dose administered [Unknown]
  - Pulmonary embolism [Recovering/Resolving]
  - Anxiety [Recovering/Resolving]
  - Product use issue [Unknown]

NARRATIVE: CASE EVENT DATE: 2017
